FAERS Safety Report 23187297 (Version 2)
Quarter: 2024Q1

REPORT INFORMATION
  Report Type: Spontaneous
  Country: AT (occurrence: None)
  Receive Date: 20231115
  Receipt Date: 20240103
  Transmission Date: 20240409
  Serious: Yes (Hospitalization)
  Sender: FDA-Public Use
  Company Number: 2023A257138

PATIENT
  Age: 66 Year
  Sex: Female

DRUGS (3)
  1. FASENRA [Suspect]
     Active Substance: BENRALIZUMAB
     Route: 058
  2. BUDESONIDE\FORMOTEROL [Suspect]
     Active Substance: BUDESONIDE\FORMOTEROL
     Dosage: 160MCG/4.5 MCG,TWO TIMES A DAY
     Route: 055
  3. CYANOCOBALAMIN/ACEMETACIN/PREDNISOLONE/THIAMINE HYDROCHLORIDE [Concomitant]

REACTIONS (5)
  - COVID-19 [Unknown]
  - General physical health deterioration [Unknown]
  - Fatigue [Unknown]
  - Anxiety [Unknown]
  - Condition aggravated [Unknown]
